FAERS Safety Report 21359252 (Version 2)
Quarter: 2022Q3

REPORT INFORMATION
  Report Type: Spontaneous
  Country: US (occurrence: US)
  Receive Date: 20220921
  Receipt Date: 20220929
  Transmission Date: 20221027
  Serious: Yes (Other)
  Sender: FDA-Public Use
  Company Number: US-PFIZER INC-PV202200065784

PATIENT
  Age: 44 Year
  Sex: Female

DRUGS (1)
  1. INLYTA [Suspect]
     Active Substance: AXITINIB
     Dosage: UNK
     Dates: start: 20220718

REACTIONS (6)
  - Sinusitis [Unknown]
  - Rash pruritic [Unknown]
  - Stomatitis [Unknown]
  - Nasal discomfort [Unknown]
  - Ear pain [Unknown]
  - Eczema [Unknown]

NARRATIVE: CASE EVENT DATE: 20220101
